FAERS Safety Report 16824595 (Version 2)
Quarter: 2019Q4

REPORT INFORMATION
  Report Type: Spontaneous
  Country: PL (occurrence: PL)
  Receive Date: 20190918
  Receipt Date: 20191004
  Transmission Date: 20200122
  Serious: Yes (Other)
  Sender: FDA-Public Use
  Company Number: PL-GILEAD-2019-0428844

PATIENT
  Age: 34 Year
  Sex: Male
  Weight: 70 kg

DRUGS (1)
  1. GENVOYA [Suspect]
     Active Substance: COBICISTAT\ELVITEGRAVIR\EMTRICITABINE\TENOFOVIR ALAFENAMIDE FUMARATE
     Indication: HIV INFECTION
     Dosage: UNK
     Route: 065
     Dates: start: 201703

REACTIONS (13)
  - Proctitis ulcerative [Recovered/Resolved]
  - Abnormal faeces [Recovered/Resolved]
  - Colitis ulcerative [Recovered/Resolved]
  - Chlamydial infection [Recovered/Resolved]
  - Faeces hard [Recovered/Resolved]
  - Inflammation [Recovered/Resolved]
  - Flatulence [Recovered/Resolved]
  - Dyschezia [Recovered/Resolved]
  - Haemorrhage [Recovered/Resolved]
  - Haemorrhoids [Recovered/Resolved]
  - Neoplasm [Recovered/Resolved]
  - Irritable bowel syndrome [Recovered/Resolved]
  - Diarrhoea [Recovered/Resolved]

NARRATIVE: CASE EVENT DATE: 201704
